FAERS Safety Report 26052950 (Version 1)
Quarter: 2025Q4

REPORT INFORMATION
  Report Type: Spontaneous
  Country: US (occurrence: US)
  Receive Date: 20251117
  Receipt Date: 20251117
  Transmission Date: 20260118
  Serious: No
  Sender: GALDERMA
  Company Number: US-GALDERMA-US2025021873

PATIENT

DRUGS (2)
  1. NEMLUVIO [Suspect]
     Active Substance: NEMOLIZUMAB-ILTO
     Indication: Neurodermatitis
     Route: 058
  2. NEMLUVIO [Suspect]
     Active Substance: NEMOLIZUMAB-ILTO
     Dosage: UNK
     Route: 058

REACTIONS (5)
  - Lethargy [Recovering/Resolving]
  - Skin irritation [Recovering/Resolving]
  - Abnormal weight gain [Recovering/Resolving]
  - Brain fog [Recovering/Resolving]
  - Sinus pain [Recovering/Resolving]
